FAERS Safety Report 8887016 (Version 1)
Quarter: 2012Q4

REPORT INFORMATION
  Report Type: 
  Country: IT (occurrence: IT)
  Receive Date: 20121105
  Receipt Date: 20121105
  Transmission Date: 20130627
  Serious: Yes (Other)
  Sender: FDA-Public Use
  Company Number: PHHY2012IT098519

PATIENT
  Age: 40 Year
  Sex: Male

DRUGS (2)
  1. VOLTAREN [Suspect]
     Dosage: 75 mg/3ml
     Route: 030
     Dates: start: 20121020
  2. THIOCOLCHICOSIDE [Suspect]
     Dosage: 4 mg/2ml
     Route: 030
     Dates: start: 20121020

REACTIONS (4)
  - Throat tightness [Recovering/Resolving]
  - Visual acuity reduced [Recovering/Resolving]
  - Hyperhidrosis [Recovering/Resolving]
  - Feeling hot [Recovering/Resolving]
